FAERS Safety Report 17798019 (Version 4)
Quarter: 2020Q3

REPORT INFORMATION
  Report Type: Report from Study
  Country: None (occurrence: US)
  Receive Date: 20200518
  Receipt Date: 20200820
  Transmission Date: 20201102
  Serious: Yes (Other)
  Sender: FDA-Public Use
  Company Number: US-ABBVIE-20K-163-3403759-00

PATIENT
  Age: 89 Year
  Sex: Male

DRUGS (4)
  1. VENCLEXTA [Suspect]
     Active Substance: VENETOCLAX
     Indication: CHRONIC LYMPHOCYTIC LEUKAEMIA
     Dosage: STARTING PACK
     Route: 048
     Dates: start: 20200429, end: 202004
  2. VENCLEXTA [Suspect]
     Active Substance: VENETOCLAX
     Dosage: STARTING PACK
     Route: 048
     Dates: start: 202004, end: 2020
  3. VENCLEXTA [Suspect]
     Active Substance: VENETOCLAX
     Indication: HAEMOLYTIC ANAEMIA
     Route: 048
     Dates: start: 201905
  4. CALQUENCE [Concomitant]
     Active Substance: ACALABRUTINIB
     Indication: HAEMOLYTIC ANAEMIA
     Route: 048
     Dates: start: 20200723

REACTIONS (10)
  - Haemolytic anaemia [Unknown]
  - Photosensitivity reaction [Unknown]
  - Haemoglobin decreased [Unknown]
  - Erythema [Unknown]
  - Transfusion [Unknown]
  - Pruritus [Unknown]
  - Walking aid user [Unknown]
  - Abdominal discomfort [Unknown]
  - Kyphosis [Unknown]
  - Diarrhoea [Not Recovered/Not Resolved]

NARRATIVE: CASE EVENT DATE: 20200507
